FAERS Safety Report 4960119-3 (Version None)
Quarter: 2006Q1

REPORT INFORMATION
  Report Type: 
  Country: None (occurrence: None)
  Receive Date: 20060328
  Receipt Date: 20060314
  Transmission Date: 20060701
  Serious: Yes (Hospitalization)
  Sender: FDA-Public Use
  Company Number: 2006PV010213

PATIENT
  Age: 56 Year
  Sex: Male
  Weight: 136.0791 kg

DRUGS (6)
  1. BYETTA [Suspect]
     Indication: DIABETES MELLITUS NON-INSULIN-DEPENDENT
     Dosage: 10 + 5 MCG/BID;SC
     Route: 058
     Dates: start: 20060206, end: 20060217
  2. BYETTA [Suspect]
     Indication: DIABETES MELLITUS NON-INSULIN-DEPENDENT
     Dosage: 10 + 5 MCG/BID;SC
     Route: 058
     Dates: start: 20060218
  3. GLUCOPHAGE [Concomitant]
  4. GLYBURIDE [Concomitant]
  5. QUININE [Concomitant]
  6. PLAVIX [Concomitant]

REACTIONS (9)
  - ANGINA PECTORIS [None]
  - ARTERIOSPASM CORONARY [None]
  - BLOOD GLUCOSE INCREASED [None]
  - CARDIAC ENZYMES INCREASED [None]
  - CORONARY ARTERY OCCLUSION [None]
  - DYSPNOEA [None]
  - FATIGUE [None]
  - LETHARGY [None]
  - NAUSEA [None]
